FAERS Safety Report 4867036-8 (Version None)
Quarter: 2005Q4

REPORT INFORMATION
  Report Type: 
  Country: None (occurrence: None)
  Receive Date: 20051222
  Receipt Date: 20051208
  Transmission Date: 20060501
  Serious: Yes (Other)
  Sender: FDA-Public Use
  Company Number: US016505

PATIENT
  Age: 76 Year
  Sex: Female

DRUGS (6)
  1. ARSENIC TRIOXIDE [Suspect]
     Indication: ACUTE PROMYELOCYTIC LEUKAEMIA
     Dosage: 9.225 MG DAILY INTRAVENOUS DRIP
     Route: 041
     Dates: start: 20050822, end: 20050915
  2. BROTIZOLAM [Concomitant]
  3. WARFARIN POTASSIUM [Concomitant]
  4. AMLODIPINE BESYLATE [Concomitant]
  5. SENNA LEAF/SENNA POD [Concomitant]
  6. VALSARTAN [Concomitant]

REACTIONS (1)
  - WHITE BLOOD CELL COUNT DECREASED [None]
